FAERS Safety Report 14794263 (Version 11)
Quarter: 2020Q4

REPORT INFORMATION
  Report Type: Spontaneous
  Country: JP (occurrence: JP)
  Receive Date: 20180423
  Receipt Date: 20201225
  Transmission Date: 20210113
  Serious: Yes (Death, Hospitalization)
  Sender: FDA-Public Use
  Company Number: JP-ABBVIE-18K-087-2223130-00

PATIENT
  Age: 76 Year
  Sex: Female

DRUGS (4)
  1. CARBIDOPA HYDRATE - LEVODOPA MIXT [Concomitant]
     Indication: PARKINSON^S DISEASE
     Dosage: AT THE TIME OF AWAKENING
     Route: 048
  2. DUODOPA [Suspect]
     Active Substance: CARBIDOPA\LEVODOPA
     Indication: PARKINSON^S DISEASE
     Dosage: MD: 5 ML, CD: 1.6 ML/HR X 16 HR
     Route: 050
     Dates: start: 20170911, end: 20170917
  3. DUODOPA [Suspect]
     Active Substance: CARBIDOPA\LEVODOPA
     Dosage: CD: 2.5 ML/HR X 16 HR
     Route: 050
     Dates: end: 20181203
  4. DUODOPA [Suspect]
     Active Substance: CARBIDOPA\LEVODOPA
     Route: 050
     Dates: start: 20171215, end: 20181025

REACTIONS (15)
  - Overdose [Unknown]
  - Device use issue [Unknown]
  - Spinal compression fracture [Unknown]
  - Postural reflex impairment [Unknown]
  - Fall [Unknown]
  - Bradykinesia [Unknown]
  - Femoral neck fracture [Not Recovered/Not Resolved]
  - Dyskinesia [Not Recovered/Not Resolved]
  - Wrong technique in device usage process [Unknown]
  - Mobility decreased [Unknown]
  - Sepsis [Fatal]
  - Hypoacusis [Unknown]
  - Anal incontinence [Unknown]
  - Malaise [Unknown]
  - Unevaluable event [Unknown]

NARRATIVE: CASE EVENT DATE: 201801
